FAERS Safety Report 5845306-4 (Version None)
Quarter: 2008Q3

REPORT INFORMATION
  Report Type: 
  Country: None (occurrence: None)
  Receive Date: 20080814
  Receipt Date: 20080804
  Transmission Date: 20090109
  Serious: Yes (Hospitalization, Other)
  Sender: FDA-Public Use
  Company Number: CA-ABBOTT-08P-028-0468639-00

PATIENT
  Sex: Female
  Weight: 47.216 kg

DRUGS (3)
  1. HUMIRA [Suspect]
     Indication: CROHN'S DISEASE
     Route: 058
     Dates: start: 20080513
  2. MESALAMINE [Concomitant]
     Indication: DRUG USE FOR UNKNOWN INDICATION
  3. AZATHIOPRINE [Concomitant]
     Indication: DRUG USE FOR UNKNOWN INDICATION

REACTIONS (5)
  - DRUG INEFFECTIVE [None]
  - HYPOAESTHESIA [None]
  - INCISION SITE INFECTION [None]
  - INTESTINAL OBSTRUCTION [None]
  - VESICAL FISTULA [None]
